FAERS Safety Report 7807307-6 (Version None)
Quarter: 2011Q4

REPORT INFORMATION
  Report Type: 
  Country: None (occurrence: None)
  Receive Date: 20111011
  Receipt Date: 20110929
  Transmission Date: 20120403
  Serious: Yes (Hospitalization, Other)
  Sender: FDA-Public Use
  Company Number: FR-ELI_LILLY_AND_COMPANY-FR201109008227

PATIENT
  Sex: Male

DRUGS (18)
  1. CISPLATIN [Concomitant]
     Indication: PLEURAL MESOTHELIOMA
     Dosage: 141 MG, UNK
     Dates: start: 20101029, end: 20101118
  2. DOMPERIDONE [Concomitant]
  3. SPECIAFOLDINE [Concomitant]
     Indication: LYMPHOCYTIC LYMPHOMA
     Dosage: UNK
     Dates: end: 20110808
  4. ALIMTA [Suspect]
     Dosage: 950 MG, UNK
     Route: 042
     Dates: start: 20110718, end: 20110722
  5. CHLORPROMAZINE HCL [Concomitant]
     Indication: PREMEDICATION
  6. PANTOPRAZOLE SODIUM [Concomitant]
  7. ALIMTA [Suspect]
     Indication: PLEURAL MESOTHELIOMA
     Dosage: 950 MG, PER CYCLE
     Route: 042
     Dates: start: 20101029, end: 20110217
  8. CARBOPLATIN [Concomitant]
     Indication: PLEURAL MESOTHELIOMA
     Dosage: UNK
     Dates: start: 20101216, end: 20110217
  9. VITAMIN B-12 [Concomitant]
     Dosage: UNK
     Dates: start: 20101201, end: 20101201
  10. SOLU-MEDROL [Concomitant]
     Indication: PREMEDICATION
  11. TRANXENE [Concomitant]
     Indication: PREMEDICATION
  12. PRAZEPAM [Concomitant]
  13. VITAMIN B-12 [Concomitant]
     Dosage: UNK
     Dates: start: 20100901, end: 20100901
  14. VITAMIN B-12 [Concomitant]
     Dosage: UNK
     Dates: start: 20110706, end: 20110706
  15. ZOFRAN [Concomitant]
  16. PREDNISOLONE [Concomitant]
     Indication: PREMEDICATION
  17. KYTRIL [Concomitant]
     Indication: PREMEDICATION
  18. ZOLOFT [Concomitant]

REACTIONS (5)
  - DEAFNESS [None]
  - PYREXIA [None]
  - TINNITUS [None]
  - BLOOD DISORDER [None]
  - TOXIC SKIN ERUPTION [None]
